FAERS Safety Report 11733920 (Version 1)
Quarter: 2015Q4

REPORT INFORMATION
  Report Type: Spontaneous
  Country: US (occurrence: US)
  Receive Date: 20151110
  Receipt Date: 20151110
  Transmission Date: 20160304
  Serious: No
  Sender: FDA-Public Use
  Company Number: US-ELI_LILLY_AND_COMPANY-US201205009668

PATIENT
  Age: 90 Year
  Sex: Female

DRUGS (1)
  1. FORTEO [Suspect]
     Active Substance: TERIPARATIDE
     Dosage: 20 UG, UNKNOWN
     Dates: start: 20120223

REACTIONS (4)
  - Muscular weakness [Unknown]
  - Fatigue [Unknown]
  - Hypercalcaemia [Unknown]
  - Pain in extremity [Not Recovered/Not Resolved]
